FAERS Safety Report 11017865 (Version 2)
Quarter: 2015Q2

REPORT INFORMATION
  Report Type: Spontaneous
  Country: US (occurrence: US)
  Receive Date: 20150412
  Receipt Date: 20150525
  Transmission Date: 20150821
  Serious: No
  Sender: FDA-Public Use
  Company Number: US-JNJFOC-20140101463

PATIENT
  Sex: Female
  Weight: 47.17 kg

DRUGS (2)
  1. GLYCOPYRROLATE. [Concomitant]
     Active Substance: GLYCOPYRROLATE
     Indication: CONSTIPATION
     Route: 065
  2. ORTHO EVRA [Suspect]
     Active Substance: ETHINYL ESTRADIOL\NORELGESTROMIN
     Indication: MENSTRUATION IRREGULAR
     Route: 062
     Dates: start: 201309

REACTIONS (6)
  - Wrong technique in drug usage process [Not Recovered/Not Resolved]
  - Product use issue [Unknown]
  - Metrorrhagia [Unknown]
  - Product quality issue [Recovered/Resolved]
  - Vaginal haemorrhage [Unknown]
  - Drug dose omission [Unknown]

NARRATIVE: CASE EVENT DATE: 2013
